FAERS Safety Report 10881784 (Version 1)
Quarter: 2015Q1

REPORT INFORMATION
  Report Type: Spontaneous
  Country: US (occurrence: None)
  Receive Date: 20150225
  Receipt Date: 20150225
  Transmission Date: 20150721
  Serious: No
  Sender: FDA-Public Use
  Company Number: None

PATIENT
  Age: 38 Year
  Sex: Female

DRUGS (1)
  1. LOTEMAX [Suspect]
     Active Substance: LOTEPREDNOL ETABONATE
     Indication: EYE ALLERGY
     Dates: start: 20150211, end: 20150214

REACTIONS (2)
  - Eye discharge [None]
  - Condition aggravated [None]

NARRATIVE: CASE EVENT DATE: 20150211
